FAERS Safety Report 7228824-6 (Version None)
Quarter: 2011Q1

REPORT INFORMATION
  Report Type: 
  Country: None (occurrence: None)
  Receive Date: 20110117
  Receipt Date: 20110103
  Transmission Date: 20110831
  Serious: Yes (Hospitalization, Other)
  Sender: FDA-Public Use
  Company Number: US-RANBAXY-2011RR-41075

PATIENT
  Sex: Male

DRUGS (3)
  1. LEVAQUIN [Suspect]
     Indication: INFECTION
     Dosage: UNK
     Route: 048
     Dates: start: 20061205, end: 20061210
  2. LEVAQUIN [Suspect]
     Dosage: UNK
     Route: 048
     Dates: start: 20071026, end: 20071101
  3. CIPROFLOXACIN [Suspect]
     Indication: INFECTION
     Route: 048

REACTIONS (4)
  - TENDONITIS [None]
  - BREATH ODOUR [None]
  - LYMPHADENOPATHY [None]
  - TENDON RUPTURE [None]
